FAERS Safety Report 13894553 (Version 1)
Quarter: 2017Q3

REPORT INFORMATION
  Report Type: Spontaneous
  Country: US (occurrence: US)
  Receive Date: 20170823
  Receipt Date: 20170823
  Transmission Date: 20171127
  Serious: No
  Sender: FDA-Public Use
  Company Number: US-ELI_LILLY_AND_COMPANY-US201708007810

PATIENT
  Sex: Male

DRUGS (1)
  1. HUMALOG MIX75/25 [Suspect]
     Active Substance: INSULIN LISPRO
     Indication: DIABETES MELLITUS
     Dosage: UNK, UNKNOWN
     Route: 065
     Dates: start: 2009

REACTIONS (4)
  - Product storage error [Not Recovered/Not Resolved]
  - Sleep disorder [Not Recovered/Not Resolved]
  - Excessive cerumen production [Not Recovered/Not Resolved]
  - Dizziness [Not Recovered/Not Resolved]
